FAERS Safety Report 14114949 (Version 1)
Quarter: 2017Q4

REPORT INFORMATION
  Report Type: Spontaneous
  Country: FR (occurrence: FR)
  Receive Date: 20171023
  Receipt Date: 20171023
  Transmission Date: 20180321
  Serious: Yes (Hospitalization)
  Sender: FDA-Public Use
  Company Number: FR-EMD SERONO-8195157

PATIENT
  Age: 30 Year
  Sex: Female

DRUGS (4)
  1. DECAPEPTYL                         /00486501/ [Suspect]
     Active Substance: GONADORELIN
     Indication: ASSISTED FERTILISATION
     Dates: start: 20170422, end: 20170422
  2. CETROTIDE [Suspect]
     Active Substance: CETRORELIX ACETATE
     Indication: ASSISTED FERTILISATION
     Route: 058
     Dates: start: 20170418, end: 20170422
  3. HUMAN CHORIONIC GONADOTROPIN [Suspect]
     Active Substance: GONADOTROPHIN, CHORIONIC
     Indication: ASSISTED FERTILISATION
     Route: 030
     Dates: start: 20170422
  4. MENOTROPIN [Suspect]
     Active Substance: MENOTROPINS
     Indication: ASSISTED FERTILISATION
     Route: 058
     Dates: start: 20170414, end: 20170421

REACTIONS (1)
  - Peritoneal haemorrhage [Recovered/Resolved]

NARRATIVE: CASE EVENT DATE: 20170424
